FAERS Safety Report 8771668 (Version 1)
Quarter: 2012Q4

REPORT INFORMATION
  Report Type: 
  Country: US (occurrence: US)
  Receive Date: 20120905
  Receipt Date: 20120905
  Transmission Date: 20130627
  Serious: No
  Sender: FDA-Public Use
  Company Number: US-ASTRAZENECA-2012SE60135

PATIENT
  Age: 54 Year
  Sex: Female

DRUGS (6)
  1. CAPRELSA [Suspect]
     Route: 048
     Dates: start: 20120730
  2. BENICAR [Concomitant]
  3. CALCITRIOL [Concomitant]
     Indication: BLOOD CALCIUM
  4. LEVOTHYROXINE [Concomitant]
     Indication: THYROID DISORDER
  5. METFORMIN [Concomitant]
  6. OSCAL [Concomitant]

REACTIONS (7)
  - Feeling jittery [Unknown]
  - Dry skin [Recovering/Resolving]
  - Fatigue [Unknown]
  - Insomnia [Unknown]
  - Headache [Unknown]
  - Blood pressure increased [Unknown]
  - Oral pain [Recovering/Resolving]
